FAERS Safety Report 24106428 (Version 1)
Quarter: 2024Q3

REPORT INFORMATION
  Report Type: Spontaneous
  Country: ES (occurrence: None)
  Receive Date: 20240716
  Receipt Date: 20240716
  Transmission Date: 20241017
  Serious: Yes (Disabling)
  Sender: Public
  Company Number: None

PATIENT
  Age: 75 Year
  Sex: Female
  Weight: 47 kg

DRUGS (7)
  1. CARFILZOMIB [Suspect]
     Active Substance: CARFILZOMIB
     Indication: Plasma cell myeloma
  2. VELCADE [Suspect]
     Active Substance: BORTEZOMIB
  3. LEVOTHYROXINE SODIUM [Concomitant]
     Active Substance: LEVOTHYROXINE SODIUM
  4. NEXIUM [Concomitant]
     Active Substance: ESOMEPRAZOLE MAGNESIUM
  5. PANCRELIPASE [Concomitant]
     Active Substance: PANCRELIPASE
  6. colesteramyne [Concomitant]
  7. CALCIUM [Concomitant]

REACTIONS (4)
  - Plasma cell myeloma refractory [None]
  - Diarrhoea [None]
  - Pancreatic failure [None]
  - Bile acid malabsorption [None]

NARRATIVE: CASE EVENT DATE: 20240202
